FAERS Safety Report 8870962 (Version 2)
Quarter: 2013Q1

REPORT INFORMATION
  Report Type: Spontaneous
  Country: None (occurrence: None)
  Receive Date: 20121025
  Receipt Date: 20121205
  Transmission Date: 20140127
  Serious: Yes (Other)
  Sender: FDA-Public Use
  Company Number: CRC-12-510

PATIENT
  Sex: 0

DRUGS (1)
  1. ALPRAZOLAM [Suspect]

REACTIONS (13)
  - Product quality issue [None]
  - Personality change [None]
  - Tremor [None]
  - Palpitations [None]
  - Muscle tightness [None]
  - Irritability [None]
  - Dizziness [None]
  - Headache [None]
  - Abdominal pain upper [None]
  - Gastrooesophageal reflux disease [None]
  - Insomnia [None]
  - Therapeutic product ineffective [None]
  - Product substitution issue [None]
